FAERS Safety Report 13486845 (Version 2)
Quarter: 2017Q2

REPORT INFORMATION
  Report Type: Spontaneous
  Country: FR (occurrence: FR)
  Receive Date: 20170426
  Receipt Date: 20170501
  Transmission Date: 20170830
  Serious: Yes (Other)
  Sender: FDA-Public Use
  Company Number: FR-JNJFOC-20160911693

PATIENT
  Sex: Female
  Weight: 64 kg

DRUGS (3)
  1. SYMBICORT [Concomitant]
     Active Substance: BUDESONIDE\FORMOTEROL FUMARATE DIHYDRATE
     Route: 065
  2. REMICADE [Suspect]
     Active Substance: INFLIXIMAB
     Indication: ANKYLOSING SPONDYLITIS
     Route: 042
     Dates: start: 2009
  3. DOLIPRANE [Concomitant]
     Active Substance: ACETAMINOPHEN
     Route: 048

REACTIONS (7)
  - Hyperhidrosis [Recovered/Resolved]
  - Periodontitis [Not Recovered/Not Resolved]
  - Intervertebral disc protrusion [Unknown]
  - Infusion related reaction [Unknown]
  - Diarrhoea [Not Recovered/Not Resolved]
  - Diverticulum [Unknown]
  - Hot flush [Unknown]

NARRATIVE: CASE EVENT DATE: 2013
